FAERS Safety Report 9303863 (Version 1)
Quarter: 2013Q2

REPORT INFORMATION
  Report Type: Spontaneous
  Country: US (occurrence: None)
  Receive Date: 20130521
  Receipt Date: 20130521
  Transmission Date: 20140414
  Serious: No
  Sender: FDA-Public Use
  Company Number: None

PATIENT
  Age: 70 Year
  Sex: Male
  Weight: 100.7 kg

DRUGS (1)
  1. AMIODARONE [Suspect]
     Route: 048
     Dates: start: 20120809, end: 20130318

REACTIONS (1)
  - Hypothyroidism [None]
